FAERS Safety Report 12708715 (Version 1)
Quarter: 2016Q3

REPORT INFORMATION
  Report Type: Spontaneous
  Country: US (occurrence: US)
  Receive Date: 20160901
  Receipt Date: 20160901
  Transmission Date: 20161109
  Serious: No
  Sender: FDA-Public Use
  Company Number: US-009507513-1608USA012030

PATIENT
  Sex: Female

DRUGS (1)
  1. NEXPLANON [Suspect]
     Active Substance: ETONOGESTREL
     Dosage: IMPLANT, IN AN UNSPECIFIED ARM
     Route: 059
     Dates: start: 201508

REACTIONS (2)
  - Pain in extremity [Unknown]
  - Muscle injury [Unknown]
